FAERS Safety Report 5192264-4 (Version None)
Quarter: 2006Q4

REPORT INFORMATION
  Report Type: 
  Country: None (occurrence: None)
  Receive Date: 20061220
  Receipt Date: 20061208
  Transmission Date: 20070319
  Serious: Yes (Hospitalization)
  Sender: FDA-Public Use
  Company Number: 238034K06USA

PATIENT
  Age: 49 Year
  Sex: Female
  Weight: 62.1428 kg

DRUGS (8)
  1. REBIF [Suspect]
     Indication: MULTIPLE SCLEROSIS
     Dosage: 44 MCG, 3 IN 1 WEEKS, SUBCUTANEOUS
     Route: 058
     Dates: start: 20050501, end: 20060501
  2. CYCLOBENZAPRINE HCL [Concomitant]
  3. LIPITOR [Concomitant]
  4. PROVIGIL [Concomitant]
  5. PAXIL [Concomitant]
  6. COZAAR [Concomitant]
  7. ACIPHEX [Concomitant]
  8. PROCARDIA [Concomitant]

REACTIONS (2)
  - PANCREATIC PSEUDOCYST [None]
  - PANCREATITIS [None]
